FAERS Safety Report 13343036 (Version 1)
Quarter: 2017Q1

REPORT INFORMATION
  Report Type: Spontaneous
  Country: SE (occurrence: SE)
  Receive Date: 20170316
  Receipt Date: 20170316
  Transmission Date: 20170428
  Serious: Yes (Hospitalization, Other)
  Sender: FDA-Public Use
  Company Number: SE-ASTRAZENECA-2017SE25246

PATIENT
  Age: 78 Year
  Sex: Male

DRUGS (20)
  1. BRILIQUE [Suspect]
     Active Substance: TICAGRELOR
     Dosage: 180 MG, DAILY
     Route: 048
     Dates: start: 20150227, end: 20150313
  2. SALURES [Concomitant]
     Active Substance: BENDROFLUMETHIAZIDE
  3. METFORMIN [Concomitant]
     Active Substance: METFORMIN HYDROCHLORIDE
  4. OMEPRAZOL ACTAVIS [Concomitant]
     Active Substance: OMEPRAZOLE
  5. ENALAPRIL [Concomitant]
     Active Substance: ENALAPRIL
  6. MIRTAZAPINE. [Concomitant]
     Active Substance: MIRTAZAPINE
  7. DIMETICONE [Concomitant]
     Active Substance: DIMETHICONE
  8. NITROLINGUAL [Concomitant]
     Active Substance: NITROGLYCERIN
  9. ALVEDON [Concomitant]
     Active Substance: ACETAMINOPHEN
  10. LOSARTAN. [Concomitant]
     Active Substance: LOSARTAN
  11. TROMBYL [Concomitant]
     Active Substance: ASPIRIN
  12. SELOKENZOC [Concomitant]
     Active Substance: METOPROLOL SUCCINATE
  13. SIMVASTATIN ARROW [Concomitant]
     Active Substance: SIMVASTATIN
  14. AMLODIPINE [Concomitant]
     Active Substance: AMLODIPINE BESYLATE
  15. STESOLID [Concomitant]
     Active Substance: DIAZEPAM
  16. IMODIUM [Concomitant]
     Active Substance: LOPERAMIDE HYDROCHLORIDE
  17. DOXAZOSIN [Concomitant]
     Active Substance: DOXAZOSIN\DOXAZOSIN MESYLATE
  18. PREDNISOLON PFIZER [Concomitant]
     Active Substance: PREDNISOLONE
  19. ALLOPURINOL. [Concomitant]
     Active Substance: ALLOPURINOL
  20. ATORVASTATIN [Concomitant]
     Active Substance: ATORVASTATIN

REACTIONS (3)
  - Cardiac failure [Unknown]
  - Hypokalaemia [Unknown]
  - Dyspnoea [Unknown]

NARRATIVE: CASE EVENT DATE: 201503
